FAERS Safety Report 5050032-8 (Version None)
Quarter: 2006Q2

REPORT INFORMATION
  Report Type: 
  Country: None (occurrence: None)
  Receive Date: 20060601
  Receipt Date: 20060310
  Transmission Date: 20061013
  Serious: No
  Sender: FDA-Public Use
  Company Number: US200602003516

PATIENT
  Age: 43 Year
  Sex: Female

DRUGS (13)
  1. CYMBALTA [Suspect]
     Indication: MAJOR DEPRESSION
     Dosage: SEE IMAGE
     Dates: start: 20060123, end: 20060125
  2. CYMBALTA [Suspect]
     Indication: MAJOR DEPRESSION
     Dosage: SEE IMAGE
     Dates: start: 20060126, end: 20060128
  3. CYMBALTA [Suspect]
     Indication: MAJOR DEPRESSION
     Dosage: SEE IMAGE
     Dates: start: 20060129, end: 20060131
  4. CYMBALTA [Suspect]
     Indication: MAJOR DEPRESSION
     Dosage: SEE IMAGE
     Dates: start: 20060201, end: 20060203
  5. CYMBALTA [Suspect]
     Indication: MAJOR DEPRESSION
     Dosage: SEE IMAGE
     Dates: end: 20060206
  6. METHYLPHENIDATE HCL [Concomitant]
  7. SEROQUEL [Concomitant]
  8. ABILIFY [Concomitant]
  9. WELLBUTRIN SR [Concomitant]
  10. ATENOLOL [Concomitant]
  11. TRILEPTAL [Concomitant]
  12. NEURONTIN [Concomitant]
  13. KLONOPIN [Concomitant]

REACTIONS (1)
  - AKATHISIA [None]
